FAERS Safety Report 21689067 (Version 1)
Quarter: 2022Q4

REPORT INFORMATION
  Report Type: Spontaneous
  Country: AU (occurrence: AU)
  Receive Date: 20221206
  Receipt Date: 20221206
  Transmission Date: 20230113
  Serious: No
  Sender: FDA-Public Use
  Company Number: AU-009507513-2211AUS009888

PATIENT
  Age: 51 Year
  Sex: Female

DRUGS (1)
  1. LAGEVRIO [Suspect]
     Active Substance: MOLNUPIRAVIR
     Route: 048

REACTIONS (4)
  - Bradykinesia [Unknown]
  - Headache [Unknown]
  - Dizziness [Unknown]
  - Incorrect dosage administered [Unknown]

NARRATIVE: CASE EVENT DATE: 20221124
